FAERS Safety Report 8533263-1 (Version None)
Quarter: 2012Q3

REPORT INFORMATION
  Report Type: 
  Country: None (occurrence: None)
  Receive Date: 20120724
  Receipt Date: 20120713
  Transmission Date: 20120928
  Serious: Yes (Hospitalization)
  Sender: FDA-Public Use
  Company Number: US-ELI_LILLY_AND_COMPANY-US201108009414

PATIENT
  Sex: Female
  Weight: 64 kg

DRUGS (9)
  1. ASPIRIN [Concomitant]
     Dosage: 81 MG, QD
  2. FORTEO [Suspect]
     Indication: OSTEOPOROSIS
     Dosage: 20 UG, QD
     Route: 058
     Dates: start: 20110821
  3. FORTEO [Suspect]
     Dosage: 20 UG, QD
     Route: 058
  4. FORTEO [Suspect]
     Dosage: 20 UG, QD
     Route: 058
  5. FORTEO [Suspect]
     Dosage: 20 UG, QD
     Route: 058
  6. FORTEO [Suspect]
     Dosage: 20 UG, QD
     Route: 058
  7. FORTEO [Suspect]
     Dosage: 20 UG, QD
     Route: 058
  8. LISTERINE [Concomitant]
  9. COUMADIN [Concomitant]
     Dosage: 2.5 DF, UNKNOWN

REACTIONS (22)
  - PAIN IN EXTREMITY [None]
  - DIZZINESS [None]
  - HYPERHIDROSIS [None]
  - TRANSIENT ISCHAEMIC ATTACK [None]
  - DRY MOUTH [None]
  - VISUAL ACUITY REDUCED [None]
  - NECK PAIN [None]
  - MUSCULOSKELETAL DISORDER [None]
  - FEELING HOT [None]
  - BONE PAIN [None]
  - MUSCULOSKELETAL DISCOMFORT [None]
  - DECREASED APPETITE [None]
  - BLOOD URINE PRESENT [None]
  - NAUSEA [None]
  - ARTHRALGIA [None]
  - COCCYDYNIA [None]
  - MUSCULOSKELETAL PAIN [None]
  - RASH [None]
  - MUSCULOSKELETAL STIFFNESS [None]
  - FEELING ABNORMAL [None]
  - MASS [None]
  - MIGRAINE [None]
